FAERS Safety Report 4931073-5 (Version None)
Quarter: 2006Q1

REPORT INFORMATION
  Report Type: 
  Country: None (occurrence: None)
  Receive Date: 20060227
  Receipt Date: 20060216
  Transmission Date: 20060701
  Serious: Yes (Hospitalization)
  Sender: FDA-Public Use
  Company Number: 2006025677

PATIENT
  Age: 66 Year
  Sex: Female

DRUGS (2)
  1. ZOLOFT [Suspect]
     Indication: ILL-DEFINED DISORDER
     Dosage: 50 MG (25 MG, 2 IN 1 D), ORAL
     Route: 048
  2. AVANZA (MIRTAZAPINE) [Concomitant]

REACTIONS (4)
  - COORDINATION ABNORMAL [None]
  - DYSPHAGIA [None]
  - HEMIPARESIS [None]
  - PALATAL DISORDER [None]
